FAERS Safety Report 7434718-3 (Version None)
Quarter: 2011Q2

REPORT INFORMATION
  Report Type: 
  Country: None (occurrence: None)
  Receive Date: 20110425
  Receipt Date: 20110419
  Transmission Date: 20111010
  Serious: Yes (Hospitalization)
  Sender: FDA-Public Use
  Company Number: KR-PFIZER INC-2011074583

PATIENT
  Age: 65 Year
  Sex: Male
  Weight: 54.8 kg

DRUGS (1)
  1. RAPAMUNE [Suspect]
     Indication: RENAL TRANSPLANT
     Dosage: 2 MG, 1X/DAY
     Route: 048
     Dates: start: 20110102, end: 20110222

REACTIONS (2)
  - DIABETES MELLITUS [None]
  - INTERSTITIAL LUNG DISEASE [None]
